FAERS Safety Report 6096288-4 (Version None)
Quarter: 2009Q1

REPORT INFORMATION
  Report Type: 
  Country: None (occurrence: None)
  Receive Date: 20090227
  Receipt Date: 20081027
  Transmission Date: 20090719
  Serious: No
  Sender: FDA-Public Use
  Company Number: A0754286A

PATIENT
  Sex: Female

DRUGS (1)
  1. LAMICTAL [Suspect]
     Route: 065
     Dates: start: 20081022

REACTIONS (4)
  - EYE DISORDER [None]
  - FATIGUE [None]
  - PAIN IN EXTREMITY [None]
  - SLEEP DISORDER [None]
